FAERS Safety Report 9451002 (Version 1)
Quarter: 2013Q3

REPORT INFORMATION
  Report Type: Spontaneous
  Country: GB (occurrence: None)
  Receive Date: 20130807
  Receipt Date: 20130807
  Transmission Date: 20140515
  Serious: Yes (Life-Threatening, Other)
  Sender: FDA-Public Use
  Company Number: AUR-APL-2013-06359

PATIENT
  Age: 37 Year
  Sex: Male
  Weight: 58 kg

DRUGS (3)
  1. SERTRALINE [Suspect]
     Indication: SUICIDAL IDEATION
     Route: 048
     Dates: start: 20130701, end: 20130712
  2. CITALOPRAM [Concomitant]
  3. RISPERIDONE [Concomitant]

REACTIONS (2)
  - Off label use [None]
  - Suicidal ideation [None]
